FAERS Safety Report 8624119-4 (Version None)
Quarter: 2012Q3

REPORT INFORMATION
  Report Type: 
  Country: None (occurrence: None)
  Receive Date: 20120827
  Receipt Date: 20120817
  Transmission Date: 20120928
  Serious: Yes (Hospitalization)
  Sender: FDA-Public Use
  Company Number: US-ASTRAZENECA-2012SE59894

PATIENT
  Age: 81 Year
  Sex: Male

DRUGS (1)
  1. NEXIUM [Suspect]
     Indication: GASTROOESOPHAGEAL REFLUX DISEASE
     Route: 048

REACTIONS (7)
  - PATHOLOGICAL FRACTURE [None]
  - EROSIVE OESOPHAGITIS [None]
  - MALNUTRITION [None]
  - OSTEOARTHRITIS [None]
  - SPINAL FRACTURE [None]
  - BONE LOSS [None]
  - GASTROINTESTINAL MUCOSAL DISORDER [None]
